FAERS Safety Report 6699380-6 (Version None)
Quarter: 2010Q2

REPORT INFORMATION
  Report Type: 
  Country: None (occurrence: None)
  Receive Date: 20100426
  Receipt Date: 20100409
  Transmission Date: 20101027
  Serious: Yes (Hospitalization)
  Sender: FDA-Public Use
  Company Number: APP201000221

PATIENT
  Age: 42 Year
  Sex: Male

DRUGS (4)
  1. FLUOROURACIL [Suspect]
     Indication: COLON CANCER
     Dosage: 860 MG, ONCE, INTRAENOUS BOLUS, 1280 MG, OVER 24 HOURS, INTRAVENOUS
     Route: 040
     Dates: start: 20100315
  2. FLUOROURACIL [Suspect]
     Indication: COLON CANCER
     Dosage: 860 MG, ONCE, INTRAENOUS BOLUS, 1280 MG, OVER 24 HOURS, INTRAVENOUS
     Route: 040
     Dates: start: 20100315
  3. OXALIPLATIN [Suspect]
     Indication: COLON CANCER
     Dosage: 170 MG, 1 IN 2 WK, INTRAVENOUS
     Route: 042
     Dates: start: 20100315, end: 20100315
  4. LEUCOVORIN CALCIUM [Suspect]
     Indication: COLON CANCER
     Dosage: 430 MG, 1 IN 1 WK, INTRAVENOUS
     Route: 042
     Dates: start: 20100315, end: 20100315

REACTIONS (5)
  - HEADACHE [None]
  - HYPOTENSION [None]
  - PYREXIA [None]
  - SEPSIS [None]
  - VOMITING [None]
